FAERS Safety Report 15629701 (Version 1)
Quarter: 2018Q4

REPORT INFORMATION
  Report Type: Spontaneous
  Country: GB (occurrence: GB)
  Receive Date: 20181117
  Receipt Date: 20181117
  Transmission Date: 20190205
  Serious: Yes (Other)
  Sender: FDA-Public Use
  Company Number: GB-ROCHE-2216694

PATIENT
  Age: 74 Year
  Sex: Female
  Weight: 53 kg

DRUGS (6)
  1. ALLOPURINOL. [Concomitant]
     Active Substance: ALLOPURINOL
     Indication: CHRONIC LYMPHOCYTIC LEUKAEMIA
     Route: 048
     Dates: start: 20180918
  2. LACIDIPINE [Concomitant]
     Active Substance: LACIDIPINE
     Route: 048
  3. UBIDECARENONE [Concomitant]
     Active Substance: UBIDECARENONE
     Route: 065
  4. ACETYLSALICYLIC ACID [Concomitant]
     Active Substance: ASPIRIN
     Route: 048
  5. RITUXIMAB. [Suspect]
     Active Substance: RITUXIMAB
     Indication: PRODUCT USED FOR UNKNOWN INDICATION
     Route: 042
     Dates: start: 20181017, end: 20181017
  6. IBRUTINIB [Concomitant]
     Active Substance: IBRUTINIB
     Indication: CHRONIC LYMPHOCYTIC LEUKAEMIA
     Route: 048
     Dates: start: 20180918

REACTIONS (2)
  - Intraocular pressure increased [Unknown]
  - Hypertension [Unknown]

NARRATIVE: CASE EVENT DATE: 20181017
